FAERS Safety Report 4751218-X (Version None)
Quarter: 2005Q3

REPORT INFORMATION
  Report Type: 
  Country: None (occurrence: None)
  Receive Date: 20050824
  Receipt Date: 20050811
  Transmission Date: 20060218
  Serious: Yes (Other)
  Sender: FDA-Public Use
  Company Number: PHBS2005JP11737

PATIENT
  Age: 3 Year
  Sex: Female

DRUGS (5)
  1. ZADITEN [Suspect]
     Indication: DERMATITIS ATOPIC
     Dosage: 0.8 MG, UNK
     Route: 048
     Dates: start: 20041014
  2. TAMIFLU /GFR/ [Suspect]
     Dosage: 50 MG, UNK
     Route: 048
     Dates: start: 20050304, end: 20050309
  3. PERIACTIN [Suspect]
     Dosage: 2.8 MG, UNK
     Route: 048
     Dates: start: 20050304, end: 20050309
  4. ASVERIN [Concomitant]
     Dosage: 25 MG, UNK
     Route: 048
     Dates: start: 20050304, end: 20050309
  5. MUCODYNE [Concomitant]
     Dosage: 400 MG, UNK
     Dates: start: 20050304, end: 20050309

REACTIONS (5)
  - DEPRESSED LEVEL OF CONSCIOUSNESS [None]
  - FALL [None]
  - INFLUENZA [None]
  - PALLOR [None]
  - PYREXIA [None]
